FAERS Safety Report 19034092 (Version 1)
Quarter: 2021Q1

REPORT INFORMATION
  Report Type: Spontaneous
  Country: US (occurrence: US)
  Receive Date: 20210319
  Receipt Date: 20210319
  Transmission Date: 20210420
  Serious: Yes (Other)
  Sender: FDA-Public Use
  Company Number: US-LUNDBECK-DKLU3030218

PATIENT
  Age: 52 Year
  Sex: Female

DRUGS (1)
  1. VYEPTI [Suspect]
     Active Substance: EPTINEZUMAB-JJMR
     Indication: MIGRAINE
     Route: 042
     Dates: start: 20210308, end: 20210308

REACTIONS (12)
  - Heart rate increased [Recovered/Resolved]
  - Blepharospasm [Recovered/Resolved]
  - Abnormal sensation in eye [Recovered/Resolved]
  - Flushing [Recovered/Resolved]
  - Blood pressure increased [Recovered/Resolved]
  - Product administration interrupted [Unknown]
  - Paraesthesia [Recovered/Resolved]
  - Dizziness [Recovered/Resolved]
  - Chest discomfort [Recovered/Resolved]
  - Dyspnoea [Recovered/Resolved]
  - Hypoaesthesia [Recovered/Resolved]
  - Tremor [Recovered/Resolved]

NARRATIVE: CASE EVENT DATE: 20210308
